FAERS Safety Report 7222185-4 (Version None)
Quarter: 2011Q1

REPORT INFORMATION
  Report Type: 
  Country: None (occurrence: None)
  Receive Date: 20110112
  Receipt Date: 20110105
  Transmission Date: 20110831
  Serious: Yes (Hospitalization)
  Sender: FDA-Public Use
  Company Number: US-TEVA-260348USA

PATIENT
  Age: 97 Year
  Sex: Female

DRUGS (1)
  1. NITROFURANTOIN [Suspect]

REACTIONS (4)
  - INFECTION [None]
  - PNEUMONIA [None]
  - DELIRIUM [None]
  - SOMNOLENCE [None]
